FAERS Safety Report 8936851 (Version 1)
Quarter: 2012Q4

REPORT INFORMATION
  Report Type: Report from Study
  Country: JP (occurrence: JP)
  Receive Date: 20121130
  Receipt Date: 20121130
  Transmission Date: 20130627
  Serious: Yes (Other)
  Sender: FDA-Public Use
  Company Number: JP-VERTEX PHARMACEUTICAL INC.-2012-025302

PATIENT
  Age: 62 Year
  Sex: Female

DRUGS (12)
  1. VX-950 (TELAPREVIR) [Suspect]
     Indication: CHRONIC HEPATITIS C
     Dosage: 1500 mg, qd
     Route: 048
     Dates: start: 20120413
  2. RIBAVIRIN [Suspect]
     Indication: CHRONIC HEPATITIS C
     Dosage: 600 mg, qd
     Route: 048
     Dates: start: 20120413
  3. RIBAVIRIN [Suspect]
     Dosage: 400 mg, qd
     Route: 048
  4. PEGINTERFERON ALFA-2B [Suspect]
     Indication: CHRONIC HEPATITIS C
     Dosage: 1.5 ?g/kg, qw
     Route: 058
     Dates: start: 20120413, end: 20120419
  5. PEGINTERFERON ALFA-2B [Suspect]
     Dosage: 0.75 ?g/kg, qw
     Route: 058
     Dates: start: 20120420
  6. PEGINTERFERON ALFA-2B [Suspect]
     Dosage: 1.5 ?g/kg, qw
     Route: 058
  7. PEGINTERFERON ALFA-2B [Suspect]
     Dosage: 0.75 ?g/kg, qw
     Route: 058
  8. ARASENA A [Concomitant]
     Dosage: 2 to 3 times/ day
     Route: 061
     Dates: start: 20120607
  9. VOLTAREN                           /00372301/ [Concomitant]
     Indication: PYREXIA
     Dosage: UNK, prn
     Route: 048
     Dates: end: 20120705
  10. RINDERON-VG [Concomitant]
     Dosage: 2 DF, qd
     Route: 061
  11. AMOBAN [Concomitant]
     Dosage: 7.5 mg, qd
     Route: 048
  12. ALLOPURINOL [Concomitant]
     Dosage: 200 mg, qd
     Route: 048

REACTIONS (1)
  - Neutrophil count decreased [Not Recovered/Not Resolved]
